FAERS Safety Report 8474101-5 (Version None)
Quarter: 2012Q2

REPORT INFORMATION
  Report Type: 
  Country: None (occurrence: None)
  Receive Date: 20120628
  Receipt Date: 20110506
  Transmission Date: 20120825
  Serious: Yes (Other)
  Sender: FDA-Public Use
  Company Number: US-MYLANLABS-2011S1009693

PATIENT
  Age: 25 Year
  Sex: Male
  Weight: 69.85 kg

DRUGS (3)
  1. TOPAMAX [Concomitant]
  2. MYLANTA [Concomitant]
  3. CLOZAPINE [Suspect]
     Indication: SCHIZOPHRENIA
     Route: 048
     Dates: start: 20110401, end: 20110505

REACTIONS (1)
  - GRANULOCYTOPENIA [None]
